FAERS Safety Report 7406375-3 (Version None)
Quarter: 2011Q2

REPORT INFORMATION
  Report Type: 
  Country: None (occurrence: None)
  Receive Date: 20110411
  Receipt Date: 20110405
  Transmission Date: 20111010
  Serious: Yes (Death, Life-Threatening, Other)
  Sender: FDA-Public Use
  Company Number: JP-JNJFOC-20101207556

PATIENT
  Age: 58 Year
  Sex: Female
  Weight: 46 kg

DRUGS (29)
  1. BETAMETHASONE [Concomitant]
     Route: 048
  2. PRIMPERAN TAB [Concomitant]
     Indication: NAUSEA
     Route: 048
  3. INOVAN [Concomitant]
     Indication: OVARIAN CANCER RECURRENT
     Route: 042
  4. MAGLAX [Concomitant]
     Indication: CONSTIPATION
     Route: 048
  5. ALOSENN [Concomitant]
     Indication: CONSTIPATION
     Route: 048
  6. BETAMETHASONE [Concomitant]
     Route: 048
  7. DOXORUBICIN HCL [Suspect]
     Indication: OVARIAN CANCER RECURRENT
     Dosage: COURSE 2
     Route: 042
  8. CONCENTRATED HUMAN RED BLOOD CELLS [Concomitant]
     Route: 041
  9. ANTHROBIN P [Concomitant]
     Indication: OVARIAN CANCER RECURRENT
     Route: 042
  10. DOXORUBICIN HCL [Suspect]
     Dosage: COURSE 3
     Route: 042
  11. DOXORUBICIN HCL [Suspect]
     Dosage: COURSE 1
     Route: 042
  12. ZYLORIC [Concomitant]
     Indication: PROPHYLAXIS
     Route: 049
  13. PLATELETS [Concomitant]
     Indication: OVARIAN CANCER RECURRENT
     Route: 041
  14. BETAMETHASONE [Concomitant]
     Route: 048
  15. FRESH FROZEN PLASMA [Concomitant]
     Indication: OVARIAN CANCER RECURRENT
     Route: 042
  16. HERBESSER [Concomitant]
     Indication: OVARIAN CANCER RECURRENT
     Route: 042
  17. OMEPRAL [Concomitant]
     Route: 042
  18. CONCENTRATED HUMAN RED BLOOD CELLS [Concomitant]
     Indication: OVARIAN CANCER RECURRENT
     Route: 041
  19. MUCOSTA [Concomitant]
     Indication: GASTRITIS
     Route: 048
  20. DOBUTAMINE HCL [Concomitant]
     Indication: OVARIAN CANCER RECURRENT
     Route: 042
  21. BUMINATE [Concomitant]
     Indication: OVARIAN CANCER RECURRENT
     Route: 042
  22. HANP [Concomitant]
     Indication: OVARIAN CANCER RECURRENT
     Route: 042
  23. GASTER [Concomitant]
     Route: 042
  24. LASIX [Concomitant]
     Indication: OVARIAN CANCER RECURRENT
     Route: 042
  25. NEUTROGIN [Concomitant]
     Indication: NEUTROPHIL COUNT DECREASED
     Route: 065
  26. BETAMETHASONE [Concomitant]
     Indication: OVARIAN CANCER RECURRENT
     Route: 048
  27. CONCENTRATED HUMAN RED BLOOD CELLS [Concomitant]
     Route: 041
  28. CONCENTRATED HUMAN RED BLOOD CELLS [Concomitant]
     Indication: ANAEMIA
     Route: 041
  29. REMINARON [Concomitant]
     Indication: OVARIAN CANCER RECURRENT
     Route: 042

REACTIONS (7)
  - RENAL FAILURE [None]
  - HEPATIC FUNCTION ABNORMAL [None]
  - ANAEMIA [None]
  - DISSEMINATED INTRAVASCULAR COAGULATION [None]
  - CARDIAC FAILURE [None]
  - NEUTROPHIL COUNT DECREASED [None]
  - OVARIAN CANCER [None]
